FAERS Safety Report 18104207 (Version 1)
Quarter: 2020Q3

REPORT INFORMATION
  Report Type: Spontaneous
  Country: IN (occurrence: IN)
  Receive Date: 20200803
  Receipt Date: 20200803
  Transmission Date: 20201103
  Serious: Yes (Other)
  Sender: FDA-Public Use
  Company Number: IN-B.I. PHARMACEUTICALS,INC./RIDGEFIELD-2020-BI-038418

PATIENT
  Age: 62 Year
  Sex: Male

DRUGS (2)
  1. XOVOLTIB [Suspect]
     Active Substance: AFATINIB
     Indication: EGFR GENE MUTATION
     Route: 065
     Dates: start: 20190506
  2. XOVOLTIB [Suspect]
     Active Substance: AFATINIB
     Indication: LUNG ADENOCARCINOMA

REACTIONS (2)
  - Malignant neoplasm progression [Unknown]
  - Skin toxicity [Unknown]
